FAERS Safety Report 15536406 (Version 1)
Quarter: 2018Q4

REPORT INFORMATION
  Report Type: Spontaneous
  Country: US (occurrence: US)
  Receive Date: 20181015
  Receipt Date: 20181015
  Transmission Date: 20190205
  Serious: Yes (Hospitalization)
  Sender: FDA-Public Use
  Company Number: None

PATIENT
  Age: 24 Year
  Weight: 74.9 kg

DRUGS (1)
  1. DIPHENHYDRAMINE. [Suspect]
     Active Substance: DIPHENHYDRAMINE
     Indication: MULTIPLE ALLERGIES
     Route: 048
     Dates: start: 20171130, end: 20171205

REACTIONS (6)
  - Confusional state [None]
  - Muscle rigidity [None]
  - Dysarthria [None]
  - Pyrexia [None]
  - Tremor [None]
  - Urinary retention [None]

NARRATIVE: CASE EVENT DATE: 20171205
